FAERS Safety Report 8578935-8 (Version None)
Quarter: 2012Q3

REPORT INFORMATION
  Report Type: 
  Country: None (occurrence: None)
  Receive Date: 20120808
  Receipt Date: 20120803
  Transmission Date: 20120928
  Serious: Yes (Other)
  Sender: FDA-Public Use
  Company Number: US-PFIZER INC-2012192014

PATIENT
  Sex: Female

DRUGS (2)
  1. EFFEXOR XR [Suspect]
     Dosage: UNK
  2. XANAX [Suspect]
     Dosage: UNK

REACTIONS (5)
  - LOCALISED INFECTION [None]
  - HAND FRACTURE [None]
  - FALL [None]
  - PAIN IN EXTREMITY [None]
  - VOMITING [None]
